FAERS Safety Report 7812866-3 (Version None)
Quarter: 2011Q4

REPORT INFORMATION
  Report Type: 
  Country: None (occurrence: None)
  Receive Date: 20111011
  Receipt Date: 20110927
  Transmission Date: 20120403
  Serious: Yes (Other)
  Sender: FDA-Public Use
  Company Number: 2011SP030416

PATIENT
  Age: 70 Year
  Sex: Male
  Weight: 82 kg

DRUGS (6)
  1. METHOTREXATE [Suspect]
     Indication: CENTRAL NERVOUS SYSTEM LYMPHOMA
     Dates: end: 20090703
  2. KEPPRA [Concomitant]
  3. OROCAL D3 [Concomitant]
  4. FLECAINIDE ACETATE [Concomitant]
  5. TEMOZOLOMIDE [Suspect]
     Indication: CENTRAL NERVOUS SYSTEM LYMPHOMA
     Dates: end: 20090619
  6. TADENAN [Concomitant]

REACTIONS (2)
  - METASTASES TO SKIN [None]
  - RENAL FAILURE ACUTE [None]
